FAERS Safety Report 13932041 (Version 3)
Quarter: 2017Q4

REPORT INFORMATION
  Report Type: Report from Study
  Country: US (occurrence: US)
  Receive Date: 20170904
  Receipt Date: 20171017
  Transmission Date: 20180320
  Serious: Yes (Hospitalization)
  Sender: FDA-Public Use
  Company Number: US-JNJFOC-20170822077

PATIENT
  Age: 46 Year
  Sex: Male
  Weight: 91.6 kg

DRUGS (4)
  1. ACETAMINOPHEN. [Suspect]
     Active Substance: ACETAMINOPHEN
     Route: 048
  2. ACETAMINOPHEN. [Suspect]
     Active Substance: ACETAMINOPHEN
     Indication: PRODUCT USED FOR UNKNOWN INDICATION
     Route: 048
  3. METHAMPHETAMINE [Suspect]
     Active Substance: METHAMPHETAMINE
     Indication: PRODUCT USED FOR UNKNOWN INDICATION
     Route: 048
  4. CODEINE [Suspect]
     Active Substance: CODEINE
     Indication: PRODUCT USED FOR UNKNOWN INDICATION
     Route: 048

REACTIONS (10)
  - Blood creatine phosphokinase increased [Recovered/Resolved]
  - Transaminases increased [Recovered/Resolved]
  - Dehydration [Recovered/Resolved]
  - Confusional state [Recovered/Resolved]
  - Rhabdomyolysis [Recovered/Resolved]
  - Pneumonia aspiration [Recovered/Resolved]
  - Renal tubular necrosis [Recovered/Resolved]
  - Blood creatinine increased [Recovered/Resolved]
  - Agitation [Recovered/Resolved]
  - Toxicity to various agents [Recovered/Resolved]

NARRATIVE: CASE EVENT DATE: 201708
